FAERS Safety Report 11357080 (Version 1)
Quarter: 2015Q3

REPORT INFORMATION
  Report Type: Spontaneous
  Country: US (occurrence: US)
  Receive Date: 20150803
  Receipt Date: 20150803
  Transmission Date: 20151125
  Serious: No
  Sender: FDA-Public Use
  Company Number: US-ELI_LILLY_AND_COMPANY-US201308006198

PATIENT
  Sex: Male

DRUGS (1)
  1. ZYPREXA [Suspect]
     Active Substance: OLANZAPINE
     Indication: BIPOLAR DISORDER
     Dosage: 1 DF, UNKNOWN

REACTIONS (11)
  - Stress [Unknown]
  - Emotional distress [Unknown]
  - Confusional state [Unknown]
  - Anxiety [Unknown]
  - Insomnia [Unknown]
  - Pain in extremity [Unknown]
  - Pain [Unknown]
  - Weight increased [Unknown]
  - Fear [Unknown]
  - Restlessness [Unknown]
  - Peripheral swelling [Unknown]
